FAERS Safety Report 5935169-0 (Version None)
Quarter: 2008Q4

REPORT INFORMATION
  Report Type: 
  Country: None (occurrence: None)
  Receive Date: 20081028
  Receipt Date: 20081021
  Transmission Date: 20090506
  Serious: Yes (Death)
  Sender: FDA-Public Use
  Company Number: JP-2008-0897

PATIENT
  Age: 60 Year
  Sex: Male

DRUGS (1)
  1. NAVELBINE [Suspect]
     Indication: NON-SMALL CELL LUNG CANCER

REACTIONS (1)
  - INTERSTITIAL LUNG DISEASE [None]
